FAERS Safety Report 4498476-7 (Version None)
Quarter: 2004Q4

REPORT INFORMATION
  Report Type: 
  Country: None (occurrence: None)
  Receive Date: 20041105
  Receipt Date: 20041026
  Transmission Date: 20050328
  Serious: Yes (Other)
  Sender: FDA-Public Use
  Company Number: 2004-10-1960

PATIENT
  Age: 36 Year

DRUGS (2)
  1. INTRON A [Suspect]
     Indication: MALIGNANT MELANOMA
     Dosage: SEE IMAGE
     Route: 042
  2. RADIATION THERAPY NO DOSE FORM [Suspect]
     Indication: MALIGNANT MELANOMA
     Dosage: 2.25 GY X-RAY THERAPY (20 DOSES(S))

REACTIONS (5)
  - CELLULITIS [None]
  - ERYTHEMA [None]
  - IMPAIRED HEALING [None]
  - THERAPEUTIC AGENT TOXICITY [None]
  - WOUND DEHISCENCE [None]
